FAERS Safety Report 5048487-8 (Version None)
Quarter: 2006Q3

REPORT INFORMATION
  Report Type: 
  Country: None (occurrence: None)
  Receive Date: 20060705
  Receipt Date: 20060619
  Transmission Date: 20061208
  Serious: Yes (Hospitalization)
  Sender: FDA-Public Use
  Company Number: 8017444

PATIENT
  Age: 32 Year
  Sex: Female

DRUGS (4)
  1. KEPPRA [Suspect]
     Indication: PARTIAL SEIZURES
     Dosage: 3 G/D
     Dates: start: 20050101
  2. TOPIRAMATE [Suspect]
     Indication: PARTIAL SEIZURES
     Dosage: 550 MG/D
  3. TOPIRAMATE [Suspect]
     Indication: PARTIAL SEIZURES
     Dosage: 150 MG/D
  4. TOPIRAMATE [Suspect]
     Indication: PARTIAL SEIZURES
     Dosage: 50 MG/D

REACTIONS (6)
  - ANXIETY [None]
  - DEPRESSED LEVEL OF CONSCIOUSNESS [None]
  - DRUG INEFFECTIVE [None]
  - DRUG RESISTANCE [None]
  - EPILEPTIC AURA [None]
  - GRAND MAL CONVULSION [None]
